FAERS Safety Report 14897441 (Version 2)
Quarter: 2018Q3

REPORT INFORMATION
  Report Type: Spontaneous
  Country: CA (occurrence: CA)
  Receive Date: 20180515
  Receipt Date: 20180723
  Transmission Date: 20181010
  Serious: Yes (Other)
  Sender: FDA-Public Use
  Company Number: CA-BRISTOL-MYERS SQUIBB COMPANY-BMS-2018-041141

PATIENT
  Sex: Male

DRUGS (1)
  1. ORENCIA [Suspect]
     Active Substance: ABATACEPT
     Indication: PRODUCT USED FOR UNKNOWN INDICATION
     Dosage: 125 MG, QWK
     Route: 065
     Dates: start: 201508, end: 20180408

REACTIONS (5)
  - Pain in extremity [Unknown]
  - Impaired work ability [Unknown]
  - Musculoskeletal discomfort [Recovered/Resolved]
  - Arthralgia [Unknown]
  - Drug effect incomplete [Unknown]
